FAERS Safety Report 7087896-2 (Version None)
Quarter: 2010Q4

REPORT INFORMATION
  Report Type: 
  Country: None (occurrence: None)
  Receive Date: 20101108
  Receipt Date: 20101028
  Transmission Date: 20110411
  Serious: Yes (Hospitalization)
  Sender: FDA-Public Use
  Company Number: US-US-EMD SERONO, INC.-238911K09USA

PATIENT
  Sex: Male
  Weight: 61 kg

DRUGS (4)
  1. REBIF [Suspect]
     Indication: MULTIPLE SCLEROSIS
     Route: 058
     Dates: start: 20090327
  2. DIOVAN [Concomitant]
     Indication: HYPERTENSION
     Route: 065
  3. LIPITOR [Concomitant]
     Indication: BLOOD CHOLESTEROL INCREASED
     Route: 065
  4. ADVIL [Concomitant]
     Indication: CHILLS
     Route: 065

REACTIONS (1)
  - CORONARY ARTERY STENOSIS [None]
